FAERS Safety Report 10351599 (Version 2)
Quarter: 2014Q3

REPORT INFORMATION
  Report Type: Spontaneous
  Country: IN (occurrence: IN)
  Receive Date: 20140730
  Receipt Date: 20140804
  Transmission Date: 20150326
  Serious: Yes (Life-Threatening, Hospitalization)
  Sender: FDA-Public Use
  Company Number: IN-ABBVIE-14P-078-1266343-00

PATIENT
  Age: 19 Year
  Sex: Male

DRUGS (12)
  1. ONDANSETRON [Suspect]
     Active Substance: ONDANSETRON
     Indication: HALLUCINATION
  2. OLANZAPINE. [Concomitant]
     Active Substance: OLANZAPINE
     Indication: HALLUCINATION
  3. VALPROIC ACID. [Suspect]
     Active Substance: VALPROIC ACID
     Indication: HALLUCINATION
  4. RISPERIDONE. [Concomitant]
     Active Substance: RISPERIDONE
     Indication: DELUSION
  5. RISPERIDONE. [Concomitant]
     Active Substance: RISPERIDONE
     Indication: HALLUCINATION
  6. VALPROIC ACID. [Suspect]
     Active Substance: VALPROIC ACID
     Indication: DELUSION
  7. ONDANSETRON [Suspect]
     Active Substance: ONDANSETRON
     Indication: DELUSION
  8. OLANZAPINE. [Concomitant]
     Active Substance: OLANZAPINE
     Indication: HALLUCINATION
  9. LITHIUM [Suspect]
     Active Substance: LITHIUM CARBONATE
     Indication: HALLUCINATION
  10. CLONAZEPAM. [Concomitant]
     Active Substance: CLONAZEPAM
     Indication: HALLUCINATION
  11. CLONAZEPAM. [Concomitant]
     Active Substance: CLONAZEPAM
     Indication: DELUSION
  12. LITHIUM [Suspect]
     Active Substance: LITHIUM CARBONATE
     Indication: DELUSION

REACTIONS (1)
  - Serotonin syndrome [Recovered/Resolved]
